FAERS Safety Report 17131089 (Version 1)
Quarter: 2019Q4

REPORT INFORMATION
  Report Type: Spontaneous
  Country: US (occurrence: US)
  Receive Date: 20191209
  Receipt Date: 20191209
  Transmission Date: 20200122
  Serious: Yes (Other)
  Sender: FDA-Public Use
  Company Number: US-BAUSCH-BL-2019-063407

PATIENT
  Sex: Female

DRUGS (1)
  1. LUMIFY [Suspect]
     Active Substance: BRIMONIDINE TARTRATE
     Indication: OCULAR HYPERAEMIA
     Dosage: AS NEEDED,USED ABOUT TWO BOTTLES FOR A MONTH OR TWO
     Route: 047
     Dates: start: 201910, end: 2019

REACTIONS (2)
  - Eye haemorrhage [Unknown]
  - Retinal vascular thrombosis [Recovered/Resolved]

NARRATIVE: CASE EVENT DATE: 2019
